FAERS Safety Report 23264058 (Version 1)
Quarter: 2023Q4

REPORT INFORMATION
  Report Type: Spontaneous
  Country: BE (occurrence: BE)
  Receive Date: 20231205
  Receipt Date: 20231205
  Transmission Date: 20240110
  Serious: Yes (Hospitalization)
  Sender: FDA-Public Use
  Company Number: None

PATIENT
  Age: 64 Year
  Sex: Male
  Weight: 112 kg

DRUGS (1)
  1. OPDIVO [Suspect]
     Active Substance: NIVOLUMAB
     Indication: Renal cancer metastatic
     Dosage: 3 MG/KG = 330 MG
     Route: 042

REACTIONS (4)
  - Chills [Recovering/Resolving]
  - Rash [Recovering/Resolving]
  - Hypertension [Recovering/Resolving]
  - Off label use [Unknown]
